FAERS Safety Report 25585712 (Version 1)
Quarter: 2025Q3

REPORT INFORMATION
  Report Type: Spontaneous
  Country: US (occurrence: US)
  Receive Date: 20250721
  Receipt Date: 20250721
  Transmission Date: 20251020
  Serious: Yes (Other)
  Sender: PFIZER
  Company Number: US-PFIZER INC-202500076322

PATIENT
  Age: 69 Year
  Sex: Female

DRUGS (2)
  1. BRAFTOVI [Suspect]
     Active Substance: ENCORAFENIB
     Dosage: 300 MG, 1X/DAY (TAKE 4 (75 MG) CAPSULES DAILY BY MOUTH)
     Route: 048
  2. BRAFTOVI [Suspect]
     Active Substance: ENCORAFENIB

REACTIONS (5)
  - Drug hypersensitivity [Unknown]
  - Loss of consciousness [Unknown]
  - Dyspnoea [Unknown]
  - Palpitations [Unknown]
  - Off label use [Unknown]
